FAERS Safety Report 5814593-0 (Version None)
Quarter: 2008Q3

REPORT INFORMATION
  Report Type: 
  Country: None (occurrence: None)
  Receive Date: 20080718
  Receipt Date: 20071112
  Transmission Date: 20090109
  Serious: No
  Sender: FDA-Public Use
  Company Number: US-KINGPHARMUSA00001-K200701462

PATIENT

DRUGS (2)
  1. LEVOXYL [Suspect]
     Indication: THYROID NEOPLASM
     Dosage: 50 MCG, QD
     Route: 048
     Dates: start: 20071101
  2. OTC PEDIATRIC VITAMIN LIQUID [Concomitant]
     Dosage: 1/3 DOSE

REACTIONS (2)
  - EAR CONGESTION [None]
  - HEADACHE [None]
